FAERS Safety Report 8550598-7 (Version None)
Quarter: 2012Q3

REPORT INFORMATION
  Report Type: 
  Country: None (occurrence: None)
  Receive Date: 20120730
  Receipt Date: 20120301
  Transmission Date: 20120928
  Serious: No
  Sender: FDA-Public Use
  Company Number: US-ALLERGAN-1108675US

PATIENT
  Age: 75 Year
  Sex: Female

DRUGS (3)
  1. LUMIGAN [Suspect]
     Dosage: 1 UNK, UNK
     Dates: start: 20100101
  2. CALCIUM WITH MAGNESIUM AND ZINC [Concomitant]
     Indication: BONE DENSITY ABNORMAL
     Dosage: UNK
     Route: 048
  3. LUMIGAN [Suspect]
     Indication: GLAUCOMA
     Dosage: 1 GTT, QHS
     Route: 047
     Dates: start: 20090201

REACTIONS (5)
  - INCORRECT PRODUCT STORAGE [None]
  - PALPITATIONS [None]
  - CARDIOMEGALY [None]
  - HYPERSOMNIA [None]
  - VISION BLURRED [None]
